FAERS Safety Report 15557854 (Version 1)
Quarter: 2018Q4

REPORT INFORMATION
  Report Type: Spontaneous
  Country: CZ (occurrence: CZ)
  Receive Date: 20181027
  Receipt Date: 20181027
  Transmission Date: 20190205
  Serious: Yes (Other)
  Sender: FDA-Public Use
  Company Number: CZ-009507513-1810CZE007673

PATIENT
  Age: 57 Year
  Weight: 66 kg

DRUGS (4)
  1. ZOLOFT [Concomitant]
     Active Substance: SERTRALINE HYDROCHLORIDE
     Dosage: UNK
  2. EZETROL [Suspect]
     Active Substance: EZETIMIBE
     Indication: HYPERCHOLESTEROLAEMIA
     Dosage: 10 MG, Q24H
     Dates: start: 20090815, end: 20090907
  3. PRESTARIUM NEO COMBI [Concomitant]
     Active Substance: INDAPAMIDE\PERINDOPRIL ARGININE
     Indication: HYPERTENSION
     Dosage: 5 MG, Q24H
     Route: 048
     Dates: start: 20080313
  4. DETRALEX [Concomitant]
     Active Substance: DIOSMIN\HESPERIDIN
     Dosage: UNK

REACTIONS (1)
  - Cholestasis [Recovering/Resolving]
